FAERS Safety Report 24905681 (Version 1)
Quarter: 2025Q1

REPORT INFORMATION
  Report Type: Spontaneous
  Country: US (occurrence: US)
  Receive Date: 20250130
  Receipt Date: 20250130
  Transmission Date: 20250408
  Serious: No
  Sender: HRA PHARMA
  Company Number: US-ORG100014127-2024000216

PATIENT
  Age: 64 Year
  Sex: Male

DRUGS (2)
  1. METOPIRONE [Suspect]
     Active Substance: METYRAPONE
     Indication: Hyperadrenocorticism
  2. Cisplatin/Irinotecan [Concomitant]
     Indication: Prostate cancer metastatic

REACTIONS (1)
  - Off label use [Recovered/Resolved]
